FAERS Safety Report 9201012 (Version 1)
Quarter: 2013Q2

REPORT INFORMATION
  Report Type: Spontaneous
  Country: GB (occurrence: GB)
  Receive Date: 20130401
  Receipt Date: 20130401
  Transmission Date: 20140414
  Serious: Yes (Other)
  Sender: FDA-Public Use
  Company Number: GB-JNJFOC-20130317500

PATIENT
  Sex: Male

DRUGS (2)
  1. STELARA [Suspect]
     Indication: PSORIASIS
     Route: 058
  2. STEROIDS NOS [Suspect]
     Indication: PRODUCT USED FOR UNKNOWN INDICATION
     Route: 065

REACTIONS (2)
  - Myositis [Unknown]
  - Psoriasis [Unknown]
